FAERS Safety Report 24301392 (Version 1)
Quarter: 2024Q3

REPORT INFORMATION
  Report Type: Spontaneous
  Country: RU (occurrence: RU)
  Receive Date: 20240910
  Receipt Date: 20240910
  Transmission Date: 20241016
  Serious: Yes (Other)
  Sender: SERVIER
  Company Number: None

PATIENT

DRUGS (4)
  1. ONCASPAR [Suspect]
     Active Substance: PEGASPARGASE
     Indication: Product used for unknown indication
     Dosage: 500 IU
     Route: 042
     Dates: start: 20240829, end: 20240829
  2. MERCAPTOPURINE [Concomitant]
     Active Substance: MERCAPTOPURINE
     Indication: Product used for unknown indication
     Dosage: UNK
     Route: 048
     Dates: start: 20240824, end: 20240824
  3. ONDANSETRON [Concomitant]
     Active Substance: ONDANSETRON
     Indication: Product used for unknown indication
     Dosage: UNK
     Route: 030
     Dates: start: 20240829, end: 20240829
  4. PREDNISOLONE [Concomitant]
     Active Substance: PREDNISOLONE
     Indication: Product used for unknown indication
     Dosage: 30 MG
     Route: 042
     Dates: start: 20240829, end: 20240829

REACTIONS (5)
  - Erythema [Recovered/Resolved]
  - Lacrimation increased [Recovered/Resolved]
  - Swelling of eyelid [Recovered/Resolved]
  - Cough [Recovered/Resolved]
  - Cyanosis [Recovered/Resolved]

NARRATIVE: CASE EVENT DATE: 20240829
